FAERS Safety Report 7364069-7 (Version None)
Quarter: 2011Q1

REPORT INFORMATION
  Report Type: 
  Country: None (occurrence: None)
  Receive Date: 20110321
  Receipt Date: 20110311
  Transmission Date: 20110831
  Serious: Yes (Hospitalization)
  Sender: FDA-Public Use
  Company Number: FR-PFIZER INC-2011016302

PATIENT
  Age: 52 Year
  Sex: Male
  Weight: 83 kg

DRUGS (7)
  1. CAMPTOSAR [Suspect]
     Indication: GLIOBLASTOMA
  2. MEDROL [Concomitant]
     Dosage: UNK
     Route: 048
     Dates: start: 20100819
  3. CACIT D3 [Concomitant]
     Route: 048
  4. TEMOZOLOMIDE [Suspect]
     Indication: GLIOBLASTOMA
     Dosage: 150 MG
     Route: 048
     Dates: start: 20101108, end: 20101223
  5. AVASTIN [Suspect]
     Indication: GLIOBLASTOMA
     Dosage: 825 MG
     Route: 042
  6. NEXIUM [Concomitant]
     Indication: OESOPHAGITIS
     Route: 048
  7. KEPPRA [Concomitant]
     Indication: EPILEPSY
     Route: 048

REACTIONS (1)
  - CHOLECYSTITIS [None]
